FAERS Safety Report 12197092 (Version 3)
Quarter: 2016Q2

REPORT INFORMATION
  Report Type: Report from Study
  Country: US (occurrence: US)
  Receive Date: 20160321
  Receipt Date: 20160502
  Transmission Date: 20160815
  Serious: Yes (Other)
  Sender: FDA-Public Use
  Company Number: US-BIOGEN-2016BI00205142

PATIENT
  Age: 63 Year
  Sex: Female

DRUGS (2)
  1. PLEGRIDY [Suspect]
     Active Substance: PEGINTERFERON BETA-1A
     Indication: MULTIPLE SCLEROSIS
     Route: 058
     Dates: start: 20150309, end: 20150323
  2. PLEGRIDY [Suspect]
     Active Substance: PEGINTERFERON BETA-1A
     Dosage: HALF DOSE
     Route: 058
     Dates: start: 20150429, end: 20150429

REACTIONS (7)
  - Paraesthesia [Not Recovered/Not Resolved]
  - Cognitive disorder [Not Recovered/Not Resolved]
  - Adverse drug reaction [Unknown]
  - Haemorrhage [Recovered/Resolved]
  - Memory impairment [Unknown]
  - Breast cancer [Unknown]
  - Fear [Unknown]

NARRATIVE: CASE EVENT DATE: 201503
